FAERS Safety Report 6104117-5 (Version None)
Quarter: 2009Q1

REPORT INFORMATION
  Report Type: 
  Country: None (occurrence: None)
  Receive Date: 20090305
  Receipt Date: 20090302
  Transmission Date: 20090719
  Serious: Yes (Death, Hospitalization)
  Sender: FDA-Public Use
  Company Number: PHHY2009BR07560

PATIENT
  Age: 81 Year
  Sex: Male

DRUGS (1)
  1. FORADIL [Suspect]
     Dosage: UNK

REACTIONS (1)
  - PNEUMONIA [None]
